FAERS Safety Report 6027566-2 (Version None)
Quarter: 2009Q1

REPORT INFORMATION
  Report Type: 
  Country: None (occurrence: None)
  Receive Date: 20090105
  Receipt Date: 20081226
  Transmission Date: 20090719
  Serious: Yes (Other)
  Sender: FDA-Public Use
  Company Number: US-ABBOTT-08P-163-0495038-00

PATIENT
  Sex: Male
  Weight: 127.12 kg

DRUGS (14)
  1. LUPRON DEPOT [Suspect]
     Indication: BLOOD TESTOSTERONE INCREASED
     Dosage: VARYING DOSES
     Route: 030
     Dates: start: 19950101
  2. LUPRON DEPOT [Suspect]
     Indication: ANGER
  3. LUPRON DEPOT [Suspect]
     Indication: PROPHYLAXIS
  4. THYROID TAB [Concomitant]
     Indication: DRUG USE FOR UNKNOWN INDICATION
  5. CENTRUM COMPLETE [Concomitant]
     Indication: ROUTINE HEALTH MAINTENANCE
  6. CALCIUM CARBONATE [Concomitant]
     Indication: DRUG USE FOR UNKNOWN INDICATION
  7. PREVACID [Concomitant]
     Indication: GASTRIC DISORDER
  8. EXCEDRIN [Concomitant]
     Indication: DRUG USE FOR UNKNOWN INDICATION
  9. TYLENOL (CAPLET) [Concomitant]
     Indication: DRUG USE FOR UNKNOWN INDICATION
  10. RANTIDINE [Concomitant]
     Indication: DRUG USE FOR UNKNOWN INDICATION
  11. CETRIDINZINE [Concomitant]
     Indication: HYPERSENSITIVITY
  12. SYMPREX D [Concomitant]
     Indication: DRUG USE FOR UNKNOWN INDICATION
  13. GLUCOSAMINE + CHONDROITIN [Concomitant]
     Indication: DRUG USE FOR UNKNOWN INDICATION
  14. CELEBREX [Concomitant]
     Indication: DRUG USE FOR UNKNOWN INDICATION

REACTIONS (22)
  - ANAEMIA [None]
  - ANGER [None]
  - ARTHRITIS [None]
  - BLINDNESS [None]
  - CARDIAC FAILURE CONGESTIVE [None]
  - CHOLELITHIASIS [None]
  - CONVULSION [None]
  - DIABETES INSIPIDUS [None]
  - DIARRHOEA [None]
  - FATIGUE [None]
  - HEPATIC STEATOSIS [None]
  - HYPERCHOLESTEROLAEMIA [None]
  - HYPERSOMNIA [None]
  - INCORRECT DOSE ADMINISTERED [None]
  - OBESITY [None]
  - OSTEOPOROSIS [None]
  - PAIN [None]
  - PNEUMONIA [None]
  - PULMONARY OEDEMA [None]
  - RIGHT VENTRICULAR FAILURE [None]
  - SLEEP APNOEA SYNDROME [None]
  - URTICARIA [None]
